FAERS Safety Report 6128549-4 (Version None)
Quarter: 2009Q1

REPORT INFORMATION
  Report Type: 
  Country: None (occurrence: None)
  Receive Date: 20090319
  Receipt Date: 20090304
  Transmission Date: 20090719
  Serious: Yes (Life-Threatening)
  Sender: FDA-Public Use
  Company Number: GXKR2009DE02765

PATIENT
  Age: 50 Year
  Sex: Female
  Weight: 78 kg

DRUGS (8)
  1. CLOZAPINE [Suspect]
     Dosage: 100 MG, QD, ORAL
     Route: 048
     Dates: end: 20081212
  2. CITALOPRAM HYDROBROMIDE [Concomitant]
  3. ESPUMISAN (DIMETICONE) [Concomitant]
  4. MADOPAR (BENSERAZIDE HYDROCHLORIDE, LEVODOPA) [Concomitant]
  5. MADOPAR DEPOT (BENSERAZIDE, LEVODOPA) [Concomitant]
  6. PROMETHAZINE [Concomitant]
  7. SEROQUEL [Concomitant]
  8. SIMVASTATIN [Concomitant]

REACTIONS (1)
  - ASTHMA [None]
